FAERS Safety Report 13584313 (Version 4)
Quarter: 2022Q1

REPORT INFORMATION
  Report Type: Spontaneous
  Country: US (occurrence: US)
  Receive Date: 20170526
  Receipt Date: 20220303
  Transmission Date: 20220423
  Serious: Yes (Other)
  Sender: FDA-Public Use
  Company Number: US-PFIZER INC-2017232564

PATIENT
  Age: 73 Year
  Sex: Female
  Weight: 84 kg

DRUGS (5)
  1. IBRANCE [Suspect]
     Active Substance: PALBOCICLIB
     Indication: Breast cancer female
     Dosage: 125MG, CYCLIC (ONCE A DAY FOR 21 DAYS, AND THEN OFF FOR 7 DAYS)
     Dates: start: 20170506
  2. IBRANCE [Suspect]
     Active Substance: PALBOCICLIB
     Dosage: 125MG, CYCLIC (ONCE A DAY FOR 21 DAYS, AND THEN OFF FOR 7 DAYS)
  3. IBRANCE [Suspect]
     Active Substance: PALBOCICLIB
     Dosage: 100 MG
  4. LETROZOLE [Concomitant]
     Active Substance: LETROZOLE
     Indication: Breast cancer female
     Dosage: 2.5 MG, 1X/DAY
     Dates: start: 20170428
  5. GLUCOSAMINE [Concomitant]
     Active Substance: GLUCOSAMINE
     Dosage: UNK

REACTIONS (2)
  - Diabetes mellitus [Unknown]
  - Full blood count abnormal [Unknown]
